FAERS Safety Report 5457259-1 (Version None)
Quarter: 2007Q3

REPORT INFORMATION
  Report Type: 
  Country: None (occurrence: None)
  Receive Date: 20070918
  Receipt Date: 20070206
  Transmission Date: 20080115
  Serious: No
  Sender: FDA-Public Use
  Company Number: US-ASTRAZENECA-2007UW02565

PATIENT
  Age: 60 Year
  Sex: Female
  Weight: 131.5 kg

DRUGS (7)
  1. SEROQUEL [Suspect]
     Indication: INSOMNIA
     Route: 048
     Dates: start: 20060801
  2. REQUIP [Concomitant]
  3. BUSPAR [Concomitant]
  4. PLAVIX [Concomitant]
  5. ALBUTEROL [Concomitant]
  6. PREVACID [Concomitant]
  7. LOPRESSOR [Concomitant]

REACTIONS (3)
  - BREATH ODOUR [None]
  - DIZZINESS POSTURAL [None]
  - DRY MOUTH [None]
